FAERS Safety Report 4428794-X (Version None)
Quarter: 2004Q3

REPORT INFORMATION
  Report Type: 
  Country: None (occurrence: None)
  Receive Date: 20040818
  Receipt Date: 20040816
  Transmission Date: 20050211
  Serious: Yes (Death)
  Sender: FDA-Public Use
  Company Number: US-JNJFOC-20040703685

PATIENT
  Sex: Male

DRUGS (9)
  1. RISPERDAL [Suspect]
     Indication: THINKING ABNORMAL
     Route: 049
  2. LEXAPRO [Concomitant]
  3. LEXAPRO [Concomitant]
  4. SEROQUEL [Concomitant]
  5. SEROQUEL [Concomitant]
  6. VISTARIL [Concomitant]
  7. BIAXIN [Concomitant]
  8. AMOXICILLIN [Concomitant]
  9. PREVACID [Concomitant]

REACTIONS (3)
  - ALCOHOL USE [None]
  - BLOOD AMYLASE INCREASED [None]
  - LIPASE INCREASED [None]
